FAERS Safety Report 9184440 (Version 1)
Quarter: 2012Q4

REPORT INFORMATION
  Report Type: 
  Country: PA (occurrence: PA)
  Receive Date: 20121101
  Receipt Date: 20121101
  Transmission Date: 20130627
  Serious: Yes (Disabling, Other)
  Sender: FDA-Public Use
  Company Number: CHPA2012PA022700

PATIENT
  Age: 50 Year
  Sex: Male

DRUGS (1)
  1. LAMISIL [Suspect]
     Indication: FUNGAL INFECTION
     Dosage: UNK, ONCE/SINGLE

REACTIONS (7)
  - Abasia [Unknown]
  - Dermatitis contact [Unknown]
  - Blister [Unknown]
  - Rash pustular [Unknown]
  - Skin plaque [Unknown]
  - Skin lesion [Unknown]
  - Skin disorder [Unknown]
